FAERS Safety Report 17065186 (Version 5)
Quarter: 2020Q1

REPORT INFORMATION
  Report Type: Spontaneous
  Country: JP (occurrence: JP)
  Receive Date: 20191122
  Receipt Date: 20200221
  Transmission Date: 20200409
  Serious: Yes (Other)
  Sender: FDA-Public Use
  Company Number: JP-ASTRAZENECA-2019SF65648

PATIENT
  Age: 70 Year
  Sex: Female

DRUGS (5)
  1. MIYA-BM [Concomitant]
     Active Substance: CLOSTRIDIUM BUTYRICUM SPORES STRAIN M-55
     Indication: INSOMNIA
     Route: 048
     Dates: start: 20190618, end: 20190701
  2. TAGRISSO [Suspect]
     Active Substance: OSIMERTINIB
     Indication: NON-SMALL CELL LUNG CANCER
     Route: 048
     Dates: start: 20190406, end: 20190903
  3. LOPEMIN [Concomitant]
     Indication: DIARRHOEA
     Dates: start: 20161208
  4. BROTIZOLAM [Concomitant]
     Active Substance: BROTIZOLAM
     Indication: INSOMNIA
     Dates: start: 20180411
  5. TAGRISSO [Suspect]
     Active Substance: OSIMERTINIB
     Indication: NON-SMALL CELL LUNG CANCER
     Route: 048
     Dates: start: 20191008, end: 20191114

REACTIONS (3)
  - Dermatitis [Not Recovered/Not Resolved]
  - Henoch-Schonlein purpura [Recovering/Resolving]
  - Diarrhoea [Recovering/Resolving]

NARRATIVE: CASE EVENT DATE: 20180419
